FAERS Safety Report 9165770 (Version 1)
Quarter: 2013Q1

REPORT INFORMATION
  Report Type: Spontaneous
  Country: US (occurrence: None)
  Receive Date: 20130314
  Receipt Date: 20130314
  Transmission Date: 20140127
  Serious: Yes (Hospitalization, Other)
  Sender: FDA-Public Use
  Company Number: None

PATIENT
  Age: 54 Year
  Sex: Female
  Weight: 63.5 kg

DRUGS (1)
  1. HALOPERIDOL [Suspect]
     Indication: DEPRESSION
     Dates: start: 201302

REACTIONS (8)
  - Hypersensitivity [None]
  - Facial pain [None]
  - Dyskinesia [None]
  - Trismus [None]
  - Speech disorder [None]
  - Headache [None]
  - Drooling [None]
  - Oral disorder [None]
